FAERS Safety Report 12743996 (Version 1)
Quarter: 2016Q3

REPORT INFORMATION
  Report Type: Spontaneous
  Country: US (occurrence: US)
  Receive Date: 20160914
  Receipt Date: 20160914
  Transmission Date: 20161109
  Serious: Yes (Disabling, Other)
  Sender: FDA-Public Use
  Company Number: GXBR2016US002768

PATIENT

DRUGS (1)
  1. GLATOPA [Suspect]
     Active Substance: GLATIRAMER ACETATE
     Indication: PRODUCT USED FOR UNKNOWN INDICATION
     Dosage: UNK DF, UNK
     Route: 065

REACTIONS (9)
  - Constipation [Unknown]
  - Dyspepsia [Unknown]
  - Asthenia [Unknown]
  - Gait disturbance [Unknown]
  - General physical health deterioration [Unknown]
  - Dysphagia [Unknown]
  - Gastrointestinal disorder [Unknown]
  - Weight increased [Unknown]
  - Urinary retention [Unknown]
